FAERS Safety Report 5415460-7 (Version None)
Quarter: 2007Q3

REPORT INFORMATION
  Report Type: 
  Country: None (occurrence: None)
  Receive Date: 20070815
  Receipt Date: 20070803
  Transmission Date: 20080115
  Serious: Yes (Life-Threatening, Hospitalization, Disabling)
  Sender: FDA-Public Use
  Company Number: US-ROCHE-501149

PATIENT
  Age: 55 Year
  Sex: Female
  Weight: 66.4 kg

DRUGS (1)
  1. XELODA [Suspect]
     Dosage: REPORTED AS 500 MG TWICE PER DAY FOR 14 DAYS.
     Route: 048
     Dates: start: 20070423, end: 20070506

REACTIONS (4)
  - ANOREXIA [None]
  - DIHYDROPYRIMIDINE DEHYDROGENASE DEFICIENCY [None]
  - DISBACTERIOSIS [None]
  - STOMATITIS [None]
